FAERS Safety Report 6426812-0 (Version None)
Quarter: 2009Q4

REPORT INFORMATION
  Report Type: 
  Country: None (occurrence: None)
  Receive Date: 20091104
  Receipt Date: 20091023
  Transmission Date: 20100525
  Serious: Yes (Other)
  Sender: FDA-Public Use
  Company Number: GR-JNJFOC-20090609564

PATIENT
  Age: 29 Year
  Sex: Male

DRUGS (6)
  1. DORIBAX [Suspect]
     Indication: BACTERIAL INFECTION
     Dosage: EVERY 8 HOURS. TREATMENT DURATION: 5-6 DAYS
     Route: 041
     Dates: start: 20090617, end: 20090620
  2. TAZOCIN [Suspect]
     Indication: BACTERIAL INFECTION
     Route: 042
  3. BRIKLIN [Concomitant]
     Indication: BACTERIAL INFECTION
     Route: 042
     Dates: start: 20090612, end: 20090620
  4. TARGOCID [Concomitant]
     Indication: BACTERIAL INFECTION
     Route: 042
     Dates: start: 20090612, end: 20090620
  5. RISPERDAL [Concomitant]
     Indication: PSYCHOTIC DISORDER
     Route: 048
  6. BEGALIN-P [Concomitant]
     Indication: BACTERIAL INFECTION
     Route: 042

REACTIONS (1)
  - BLOOD BILIRUBIN INCREASED [None]
